FAERS Safety Report 19378300 (Version 2)
Quarter: 2021Q2

REPORT INFORMATION
  Report Type: Report from Study
  Country: US (occurrence: US)
  Receive Date: 20210605
  Receipt Date: 20210629
  Transmission Date: 20210717
  Serious: Yes (Other)
  Sender: FDA-Public Use
  Company Number: NVSC2021US118856

PATIENT
  Sex: Male

DRUGS (1)
  1. ENTRESTO [Suspect]
     Active Substance: SACUBITRIL\VALSARTAN
     Indication: PRODUCT USED FOR UNKNOWN INDICATION
     Dosage: 1 DF, BID (BID (97/103)
     Route: 048

REACTIONS (4)
  - Dyspnoea [Unknown]
  - Oedema [Not Recovered/Not Resolved]
  - Pulmonary oedema [Unknown]
  - Renal disorder [Unknown]
